FAERS Safety Report 8329403-X (Version None)
Quarter: 2012Q2

REPORT INFORMATION
  Report Type: 
  Country: None (occurrence: None)
  Receive Date: 20120502
  Receipt Date: 20120426
  Transmission Date: 20120825
  Serious: Yes (Hospitalization)
  Sender: FDA-Public Use
  Company Number: US-PFIZER INC-2012104183

PATIENT
  Sex: Female

DRUGS (4)
  1. XANAX XR [Suspect]
     Indication: ANXIETY
     Dosage: 1 MG, 3X/DAY
     Route: 048
     Dates: start: 20040101
  2. XANAX XR [Suspect]
     Indication: PANIC ATTACK
  3. XANAX XR [Suspect]
     Indication: DEPRESSION
  4. LEXAPRO [Suspect]
     Indication: DEPRESSION
     Dosage: UNK
     Dates: start: 20040101

REACTIONS (3)
  - DEPRESSION [None]
  - MENTAL DISORDER [None]
  - MALAISE [None]
